FAERS Safety Report 12520419 (Version 1)
Quarter: 2016Q2

REPORT INFORMATION
  Report Type: Spontaneous
  Country: US (occurrence: None)
  Receive Date: 20160630
  Receipt Date: 20160630
  Transmission Date: 20160815
  Serious: Yes (Death)
  Sender: FDA-Public Use
  Company Number: None

PATIENT
  Age: 23 Year
  Sex: Male
  Weight: 90.72 kg

DRUGS (4)
  1. MARIJUANA [Concomitant]
     Active Substance: CANNABIS SATIVA SUBSP. INDICA TOP
  2. PAROXETINE HCL 20MG TAB AURO-GENERIC FOR PAXIL MEIJER PHARMACY [Suspect]
     Active Substance: PAROXETINE HYDROCHLORIDE
     Indication: DEPRESSION
     Dosage: 20MG 1 TABLET 1X DAY TABLET, SWALLOWED
     Route: 048
     Dates: start: 20150303, end: 20151129
  3. PAROXETINE HCL 20MG TAB AURO-GENERIC FOR PAXIL MEIJER PHARMACY [Suspect]
     Active Substance: PAROXETINE HYDROCHLORIDE
     Indication: SOCIAL ANXIETY DISORDER
     Dosage: 20MG 1 TABLET 1X DAY TABLET, SWALLOWED
     Route: 048
     Dates: start: 20150303, end: 20151129
  4. PROPRANOLOL [Concomitant]
     Active Substance: PROPRANOLOL\PROPRANOLOL HYDROCHLORIDE

REACTIONS (1)
  - Completed suicide [None]

NARRATIVE: CASE EVENT DATE: 20151129
